FAERS Safety Report 9981632 (Version 1)
Quarter: 2014Q1

REPORT INFORMATION
  Report Type: Spontaneous
  Country: US (occurrence: None)
  Receive Date: 20140131
  Receipt Date: 20140131
  Transmission Date: 20141002
  Serious: Yes (Other)
  Sender: FDA-Public Use
  Company Number: 096797

PATIENT
  Sex: Male

DRUGS (3)
  1. KEPPRA [Suspect]
     Indication: CONVULSION
     Dosage: (1500 MG BID)
  2. LAMICTAL [Concomitant]
  3. KLONOPIN [Concomitant]

REACTIONS (4)
  - Convulsion [None]
  - Anxiety [None]
  - Hypokalaemia [None]
  - Aura [None]
